FAERS Safety Report 5529670-1 (Version None)
Quarter: 2007Q4

REPORT INFORMATION
  Report Type: 
  Country: None (occurrence: None)
  Receive Date: 20071129
  Receipt Date: 20071122
  Transmission Date: 20080405
  Serious: Yes (Other)
  Sender: FDA-Public Use
  Company Number: JP-PFIZER INC-2007098303

PATIENT
  Age: 33 Year
  Sex: Male

DRUGS (9)
  1. ZOLOFT [Suspect]
     Dosage: DAILY DOSE:100MG
     Route: 048
     Dates: start: 20061209, end: 20071107
  2. LUDIOMIL [Concomitant]
     Route: 048
  3. DEPAS [Concomitant]
     Route: 048
  4. HALCION [Concomitant]
     Route: 048
  5. ALL OTHER THERAPEUTIC PRODUCTS [Concomitant]
     Route: 048
  6. CARBOCISTEINE [Concomitant]
     Route: 048
  7. CLARITHROMYCIN [Concomitant]
     Route: 048
  8. FLOMOX [Concomitant]
     Route: 048
  9. SILECE [Concomitant]
     Route: 048

REACTIONS (1)
  - GAMMA-GLUTAMYLTRANSFERASE INCREASED [None]
